FAERS Safety Report 4898365-X (Version None)
Quarter: 2006Q1

REPORT INFORMATION
  Report Type: 
  Country: None (occurrence: None)
  Receive Date: 20060131
  Receipt Date: 20060131
  Transmission Date: 20060701
  Serious: Yes (Disabling, Other)
  Sender: FDA-Public Use
  Company Number: None

PATIENT
  Age: 43 Year
  Sex: Male
  Weight: 92.9874 kg

DRUGS (3)
  1. LIPITOR [Suspect]
     Indication: BLOOD CHOLESTEROL INCREASED
     Dosage: 10 MG EVERY NIGHT ORAL
     Route: 048
     Dates: start: 20010301, end: 20051201
  2. TOPROL-XL [Concomitant]
  3. ACIPHEX [Concomitant]

REACTIONS (19)
  - ABDOMINAL PAIN LOWER [None]
  - AMNESIA [None]
  - ARTHROPATHY [None]
  - ASTHENIA [None]
  - DEPRESSION [None]
  - DYSKINESIA [None]
  - GASTROOESOPHAGEAL REFLUX DISEASE [None]
  - JOINT RANGE OF MOTION DECREASED [None]
  - MOVEMENT DISORDER [None]
  - MUSCLE DISORDER [None]
  - MUSCLE SPASMS [None]
  - MUSCLE TIGHTNESS [None]
  - MUSCLE TWITCHING [None]
  - PRURITUS [None]
  - RASH [None]
  - RASH PAPULAR [None]
  - SACRAL PAIN [None]
  - SPINAL DEFORMITY [None]
  - UNEVALUABLE EVENT [None]
